FAERS Safety Report 17578103 (Version 2)
Quarter: 2020Q2

REPORT INFORMATION
  Report Type: Spontaneous
  Country: US (occurrence: US)
  Receive Date: 20200324
  Receipt Date: 20200501
  Transmission Date: 20200713
  Serious: Yes (Death, Other)
  Sender: FDA-Public Use
  Company Number: US-TASMAN PHARMA, INC.-2020TSM00158

PATIENT
  Age: 66 Year
  Sex: Male
  Weight: 68.5 kg

DRUGS (5)
  1. ATORVASTATIN [Concomitant]
     Active Substance: ATORVASTATIN
  2. CLOZAPINE. [Suspect]
     Active Substance: CLOZAPINE
     Dosage: 200 MG, 1X/DAY AT BEDTIME
     Route: 048
     Dates: start: 20051108, end: 20180308
  3. CLOZAPINE. [Suspect]
     Active Substance: CLOZAPINE
     Indication: SCHIZOPHRENIA
     Dosage: 50 MG, 2X/DAY (AM AND MID-DAY)
     Route: 048
     Dates: start: 20051108, end: 20180308
  4. PEPCID AC [Concomitant]
     Active Substance: FAMOTIDINE
  5. LAMOTRIGINE. [Concomitant]
     Active Substance: LAMOTRIGINE

REACTIONS (2)
  - Presyncope [Unknown]
  - Sudden death [Fatal]

NARRATIVE: CASE EVENT DATE: 20180308
